FAERS Safety Report 6999485-6 (Version None)
Quarter: 2010Q3

REPORT INFORMATION
  Report Type: 
  Country: None (occurrence: None)
  Receive Date: 20100920
  Receipt Date: 20080229
  Transmission Date: 20110219
  Serious: Yes (Other)
  Sender: FDA-Public Use
  Company Number: US-ASTRAZENECA-2007UW15945

PATIENT
  Age: 54 Year
  Sex: Male
  Weight: 93 kg

DRUGS (9)
  1. SEROQUEL [Suspect]
     Indication: DEPRESSION
     Dosage: 200 IN AM AND 600 MG IN PM
     Route: 048
     Dates: start: 20010409
  2. SEROQUEL [Suspect]
     Dosage: 200-800MG
     Route: 048
     Dates: start: 20010716, end: 20060317
  3. ZYPREXA [Concomitant]
  4. NEURONTIN [Concomitant]
     Dates: start: 20010409
  5. XANAX [Concomitant]
     Indication: DEPRESSION
     Dates: start: 20010409
  6. REMERON [Concomitant]
     Indication: DEPRESSION
     Dates: start: 20010409
  7. DOXEPIN HCL [Concomitant]
     Dates: start: 20010409
  8. IMITREX [Concomitant]
     Dates: start: 20010409
  9. ZOMIG [Concomitant]
     Indication: HEADACHE
     Dates: start: 20010409

REACTIONS (4)
  - DIABETES MELLITUS [None]
  - HYPERLIPIDAEMIA [None]
  - HYPOGLYCAEMIA [None]
  - TYPE 2 DIABETES MELLITUS [None]
